FAERS Safety Report 15984612 (Version 1)
Quarter: 2019Q1

REPORT INFORMATION
  Report Type: Spontaneous
  Country: US (occurrence: US)
  Receive Date: 20190220
  Receipt Date: 20190220
  Transmission Date: 20190418
  Serious: Yes (Other)
  Sender: FDA-Public Use
  Company Number: US-MALLINCKRODT-T201901690

PATIENT
  Sex: Female

DRUGS (2)
  1. HYDROCODONE/ACETAMINOPHEN [Suspect]
     Active Substance: ACETAMINOPHEN\HYDROCODONE
     Indication: PAIN
     Dosage: 5/325MG, 1 TABLET EVERY 4-6 HOURS AS NEEDED
     Route: 048
     Dates: start: 20190201
  2. HYDROCODONE/ACETAMINOPHEN [Suspect]
     Active Substance: ACETAMINOPHEN\HYDROCODONE
     Dosage: UNK
     Route: 065
     Dates: start: 2017

REACTIONS (7)
  - Chest discomfort [Unknown]
  - Cardiac murmur [Unknown]
  - Incorrect dose administered [Unknown]
  - Haemorrhage intracranial [Unknown]
  - Conjunctival haemorrhage [Unknown]
  - Therapeutic response shortened [Unknown]
  - Intracranial pressure increased [Unknown]
